FAERS Safety Report 23896164 (Version 2)
Quarter: 2024Q2

REPORT INFORMATION
  Report Type: Report from Study
  Country: US (occurrence: US)
  Receive Date: 20240524
  Receipt Date: 20240612
  Transmission Date: 20240715
  Serious: Yes (Other)
  Sender: FDA-Public Use
  Company Number: US-OTSUKA-2024_014639

PATIENT
  Sex: Male

DRUGS (1)
  1. TOLVAPTAN [Suspect]
     Active Substance: TOLVAPTAN
     Indication: Congenital cystic kidney disease
     Dosage: UNK
     Route: 065
     Dates: start: 20201216

REACTIONS (4)
  - Spinal operation [Recovered/Resolved]
  - Dehydration [Unknown]
  - Thirst [Unknown]
  - Polyuria [Unknown]

NARRATIVE: CASE EVENT DATE: 20240420
